FAERS Safety Report 7811517-1 (Version None)
Quarter: 2011Q4

REPORT INFORMATION
  Report Type: 
  Country: None (occurrence: None)
  Receive Date: 20111013
  Receipt Date: 20111013
  Transmission Date: 20120403
  Serious: Yes (Life-Threatening, Hospitalization, Disabling)
  Sender: FDA-Public Use
  Company Number: None

PATIENT
  Age: 37 Year
  Sex: Female
  Weight: 75.749 kg

DRUGS (1)
  1. FLEBOGAMMA [Suspect]
     Indication: IMMUNODEFICIENCY COMMON VARIABLE
     Dates: start: 20110819, end: 20110920

REACTIONS (9)
  - DYSPNOEA [None]
  - HYPERHIDROSIS [None]
  - CHILLS [None]
  - OLIGURIA [None]
  - BACK PAIN [None]
  - MUSCLE SPASMS [None]
  - NAUSEA [None]
  - HEADACHE [None]
  - CHEST PAIN [None]
